FAERS Safety Report 7014700 (Version 6)
Quarter: 2013Q3

REPORT INFORMATION
  Report Type: Report from Study
  Country: JP (occurrence: JP)
  Receive Date: 20090609
  Receipt Date: 20130906
  Transmission Date: 20140515
  Serious: Yes (Life-Threatening, Hospitalization)
  Sender: FDA-Public Use
  Company Number: JP-PFIZER INC-2009221885

PATIENT
  Age: 65 Year
  Sex: Female
  Weight: 45 kg

DRUGS (16)
  1. SUNITINIB MALATE [Suspect]
     Indication: GASTROINTESTINAL STROMAL TUMOUR
     Dosage: 50 MG, 1X/DAY
     Route: 048
     Dates: start: 20080814, end: 20090522
  2. SUNITINIB MALATE [Suspect]
     Dosage: 50 MG, 1X/DAY, 4 WEEKS AS SCHEDULED
     Route: 048
     Dates: start: 20090129
  3. SUNITINIB MALATE [Suspect]
     Dosage: 37.5 MG, 1X/DAY, FOR 4 WEEKS AS SCHEDULED
     Route: 048
     Dates: start: 20090331
  4. SUNITINIB MALATE [Suspect]
     Dosage: 37.5 MG, 1X/DAY
     Route: 048
     Dates: start: 20090512, end: 20090522
  5. RHYTHMY [Concomitant]
     Dosage: UNK
     Route: 048
     Dates: start: 20070328
  6. AZULON [Concomitant]
     Dosage: UNK
     Dates: start: 20080827
  7. BERIZYM [Concomitant]
     Indication: GASTROINTESTINAL STROMAL TUMOUR
     Dosage: 0.6 G, 3X/DAY
     Route: 048
  8. LAC B [Concomitant]
     Indication: GASTROINTESTINAL STROMAL TUMOUR
     Dosage: 0.6 G, 3X/DAY
     Route: 048
  9. MAGNESIUM OXIDE [Concomitant]
     Dosage: 0.3 G, 3X/DAY
     Route: 048
  10. GASTER [Concomitant]
     Indication: GASTRIC ULCER
     Dosage: 20 MG, 1X/DAY
     Route: 048
     Dates: start: 20060809
  11. PERDIPINE [Concomitant]
     Dosage: UNK
     Dates: start: 20090523
  12. FERROMIA [Concomitant]
     Dosage: 50 MG, 1X/DAY
     Route: 048
     Dates: start: 20090318
  13. FOLIAMIN [Concomitant]
     Dosage: 15 MG, 3X/DAY
     Route: 048
     Dates: start: 20090318, end: 20090715
  14. THYRADIN S [Concomitant]
     Dosage: 50 UG, 1X/DAY
     Route: 048
     Dates: start: 20090309, end: 20090426
  15. THYRADIN S [Concomitant]
     Dosage: 75 UG, 1X/DAY
     Dates: start: 20090427, end: 20090715
  16. VOLTAREN [Concomitant]
     Dosage: 25 MG, AS NEEDED
     Route: 054
     Dates: start: 20090511, end: 20090523

REACTIONS (2)
  - Aneurysm ruptured [Recovering/Resolving]
  - Aneurysm [Recovering/Resolving]
